FAERS Safety Report 10751923 (Version 2)
Quarter: 2016Q1

REPORT INFORMATION
  Report Type: Spontaneous
  Country: US (occurrence: US)
  Receive Date: 20150130
  Receipt Date: 20160211
  Transmission Date: 20160525
  Serious: No
  Sender: FDA-Public Use
  Company Number: US-ENDO PHARMACEUTICALS INC.-FORT20140190

PATIENT
  Sex: Male

DRUGS (2)
  1. FORTESTA [Suspect]
     Active Substance: TESTOSTERONE
     Indication: BLOOD TESTOSTERONE DECREASED
     Route: 061
  2. FORTESTA [Suspect]
     Active Substance: TESTOSTERONE
     Route: 061

REACTIONS (2)
  - Blood testosterone increased [Recovered/Resolved]
  - Prescribed overdose [Recovered/Resolved]
